FAERS Safety Report 6897966-7 (Version None)
Quarter: 2010Q3

REPORT INFORMATION
  Report Type: 
  Country: None (occurrence: None)
  Receive Date: 20100802
  Receipt Date: 20070810
  Transmission Date: 20110219
  Serious: No
  Sender: FDA-Public Use
  Company Number: US-PFIZER INC-2007068138

PATIENT
  Sex: Male
  Weight: 136.1 kg

DRUGS (14)
  1. LYRICA [Suspect]
     Indication: FIBROMYALGIA
     Dates: start: 20070101
  2. CORTISONE ACETATE [Suspect]
  3. BENAZEPRIL HYDROCHLORIDE [Concomitant]
  4. TORSEMIDE [Concomitant]
  5. MONTELUKAST SODIUM [Concomitant]
  6. DIAZEPAM [Concomitant]
     Indication: MENIERE'S DISEASE
  7. TRAZODONE [Concomitant]
  8. AMBIEN [Concomitant]
     Indication: SLEEP DISORDER
  9. CELEXA [Concomitant]
  10. PERCOCET [Concomitant]
     Indication: PAIN
  11. VYTORIN [Concomitant]
     Indication: BLOOD CHOLESTEROL INCREASED
  12. NASONEX [Concomitant]
     Indication: HYPERSENSITIVITY
  13. ADVAIR DISKUS 100/50 [Concomitant]
     Indication: HYPERSENSITIVITY
  14. ADVIL LIQUI-GELS [Concomitant]

REACTIONS (3)
  - BLOOD GLUCOSE INCREASED [None]
  - EUPHORIC MOOD [None]
  - MEMORY IMPAIRMENT [None]
